FAERS Safety Report 5108487-6 (Version None)
Quarter: 2006Q3

REPORT INFORMATION
  Report Type: 
  Country: None (occurrence: None)
  Receive Date: 20060914
  Receipt Date: 20060905
  Transmission Date: 20061208
  Serious: Yes (Hospitalization)
  Sender: FDA-Public Use
  Company Number: HQWYE368206SEP06

PATIENT
  Age: 2 Year
  Sex: Female

DRUGS (11)
  1. AMIODARONE (AMIODARONE, UNSPEC) [Suspect]
     Indication: VENTRICULAR ARRHYTHMIA
     Dosage: 50 MG 1X PER 12 HR;; 75 MG 1X PER 12 HR
     Route: 048
  2. AMIODARONE (AMIODARONE, UNSPEC) [Suspect]
     Indication: VENTRICULAR ARRHYTHMIA
     Dosage: 50 MG 1X PER 12 HR;; 75 MG 1X PER 12 HR
     Route: 048
  3. SIROLIMUS (SIROLIMUS) [Suspect]
     Indication: IMMUNOSUPPRESSION
     Dosage: SEE IMAGE
     Route: 048
  4. SIROLIMUS (SIROLIMUS) [Suspect]
     Indication: IMMUNOSUPPRESSION
     Dosage: SEE IMAGE
     Route: 048
  5. TACROLIMUS [Suspect]
     Indication: IMMUNOSUPPRESSION
     Dosage: SEE IMAGE
     Route: 048
  6. TACROLIMUS [Suspect]
     Indication: IMMUNOSUPPRESSION
     Dosage: SEE IMAGE
     Route: 048
  7. MYCOPHENOLATE MOFETIL [Concomitant]
  8. NADOLOL [Concomitant]
  9. MENTHYLPREDNISOLONE (METHYLPREDNISOLONE) [Concomitant]
  10. THYMOGLOBULIN [Concomitant]
  11. PREDNISOLONE [Concomitant]

REACTIONS (3)
  - DRUG INEFFECTIVE [None]
  - DRUG INTERACTION [None]
  - IMMUNOSUPPRESSANT DRUG LEVEL INCREASED [None]
